FAERS Safety Report 8776394 (Version 1)
Quarter: 2012Q4

REPORT INFORMATION
  Report Type: 
  Country: FR (occurrence: FR)
  Receive Date: 20120910
  Receipt Date: 20120910
  Transmission Date: 20130627
  Serious: Yes (Congenital Anomaly)
  Sender: FDA-Public Use
  Company Number: FR-PFIZER INC-2012216925

PATIENT
  Sex: Female
  Weight: 2.72 kg

DRUGS (3)
  1. EFFEXOR [Suspect]
     Indication: POSTPARTUM DEPRESSION
     Dosage: UNK
     Route: 064
     Dates: start: 20101230, end: 20110130
  2. DEPAKINE CHRONO [Suspect]
     Indication: EPILEPSY
     Dosage: 1000 mg (2 tablets of 500mg), 1x/day
     Route: 064
     Dates: end: 20110916
  3. PROZAC [Suspect]
     Indication: POSTPARTUM DEPRESSION
     Dosage: 20 mg, 1x/day
     Route: 064
     Dates: start: 20110130, end: 20110916

REACTIONS (2)
  - Maternal exposure timing unspecified [Recovered/Resolved]
  - Polydactyly [Recovered/Resolved]
